FAERS Safety Report 6220323-3 (Version None)
Quarter: 2009Q2

REPORT INFORMATION
  Report Type: 
  Country: None (occurrence: None)
  Receive Date: 20090609
  Receipt Date: 20090527
  Transmission Date: 20091009
  Serious: Yes (Other)
  Sender: FDA-Public Use
  Company Number: US-RANBAXY-2009RR-21857

PATIENT
  Age: 58 Year
  Sex: Male

DRUGS (11)
  1. MIDAZOLAM HYDROCHLORIDE [Suspect]
     Indication: ANAESTHESIA
  2. CISATRACURIUM BESILATE [Suspect]
     Indication: ANAESTHESIA
  3. FENTANYL [Suspect]
     Indication: ANAESTHESIA
  4. PROPOFOL [Suspect]
     Indication: ANAESTHESIA
  5. CHLORHEXIDINE GLUCONATE [Suspect]
  6. CISATRACURIUM BESILATE [Concomitant]
     Indication: SKIN TEST NEGATIVE
     Dosage: 2 UNK, UNK
  7. PROPOFOL [Concomitant]
     Indication: SKIN TEST NEGATIVE
     Dosage: UNK MG/ML, UNK
  8. FENTANYL [Concomitant]
     Indication: SKIN TEST NEGATIVE
     Dosage: UNK MG/ML, UNK
  9. MIDAZOLAM HCL [Concomitant]
     Indication: SKIN TEST NEGATIVE
     Dosage: UNK MG/ML, UNK
  10. CHLORHEXIDINE GLUCONATE [Concomitant]
     Indication: SKIN TEST NEGATIVE
     Dosage: 4 UNK, UNK
  11. VANCOMYCIN HCL [Concomitant]
     Indication: PROPHYLAXIS

REACTIONS (1)
  - ANAPHYLACTIC REACTION [None]
